FAERS Safety Report 23023575 (Version 1)
Quarter: 2023Q4

REPORT INFORMATION
  Report Type: Spontaneous
  Country: PL (occurrence: PL)
  Receive Date: 20231003
  Receipt Date: 20231003
  Transmission Date: 20240109
  Serious: Yes (Other)
  Sender: FDA-Public Use
  Company Number: None

PATIENT
  Age: 74 Year
  Sex: Male
  Weight: 107 kg

DRUGS (7)
  1. OXALIPLATIN [Suspect]
     Active Substance: OXALIPLATIN
     Indication: Colon cancer
     Dates: start: 20191108, end: 20200223
  2. FLUOROURACIL [Concomitant]
     Active Substance: FLUOROURACIL
     Indication: Colon cancer
     Dates: start: 20191108, end: 20200223
  3. FLUOROURACIL [Concomitant]
     Active Substance: FLUOROURACIL
     Dates: start: 20191108, end: 20200223
  4. ONDANSETRON [Concomitant]
     Active Substance: ONDANSETRON
     Indication: Colon cancer
     Dates: start: 20191108, end: 20200223
  5. CLEMASTINE [Concomitant]
     Active Substance: CLEMASTINE
     Indication: Colon cancer
     Dosage: DOSE: 1 AMP
     Dates: start: 20191108, end: 20200223
  6. ENOXAPARIN SODIUM [Concomitant]
     Active Substance: ENOXAPARIN SODIUM
     Indication: Colon cancer
     Dates: start: 20191108, end: 20200223
  7. LEVOFOLIC [Concomitant]
     Indication: Colon cancer
     Dates: start: 20191108, end: 20200223

REACTIONS (3)
  - Chills [Recovered/Resolved]
  - Feeling hot [Recovered/Resolved]
  - Blood pressure increased [Recovered/Resolved]

NARRATIVE: CASE EVENT DATE: 20200222
